FAERS Safety Report 6088612-3 (Version None)
Quarter: 2009Q1

REPORT INFORMATION
  Report Type: 
  Country: None (occurrence: None)
  Receive Date: 20090224
  Receipt Date: 20090213
  Transmission Date: 20090719
  Serious: No
  Sender: FDA-Public Use
  Company Number: JP-PFIZER INC-2009169080

PATIENT

DRUGS (3)
  1. LIPITOR [Suspect]
     Indication: HYPERCHOLESTEROLAEMIA
     Dosage: 10 MG, UNK
     Dates: end: 20090119
  2. ZETIA [Suspect]
     Indication: HYPERCHOLESTEROLAEMIA
     Dosage: 10 MG, UNK
     Dates: start: 20090105, end: 20090119
  3. AMLODIN [Concomitant]
     Dosage: UNK

REACTIONS (4)
  - BLOOD CHOLESTEROL INCREASED [None]
  - CHROMATURIA [None]
  - EYELID OEDEMA [None]
  - LOW DENSITY LIPOPROTEIN INCREASED [None]
